FAERS Safety Report 5676702-6 (Version None)
Quarter: 2008Q1

REPORT INFORMATION
  Report Type: 
  Country: None (occurrence: None)
  Receive Date: 20080321
  Receipt Date: 20080321
  Transmission Date: 20080703
  Serious: No
  Sender: FDA-Public Use
  Company Number: None

PATIENT
  Age: 57 Year
  Sex: Female
  Weight: 52.1637 kg

DRUGS (1)
  1. NASONEX [Suspect]
     Indication: EAR INFECTION
     Dosage: 2 SPRAYS 1 X PER DAY ENDOSINUSIAL
     Route: 006

REACTIONS (3)
  - DRUG INEFFECTIVE [None]
  - ECONOMIC PROBLEM [None]
  - PHARMACEUTICAL PRODUCT COMPLAINT [None]
